FAERS Safety Report 8911784 (Version 3)
Quarter: 2013Q3

REPORT INFORMATION
  Report Type: Spontaneous
  Country: US (occurrence: US)
  Receive Date: 20121116
  Receipt Date: 20130826
  Transmission Date: 20140515
  Serious: Yes (Hospitalization)
  Sender: FDA-Public Use
  Company Number: US-BAYER-2012-117629

PATIENT
  Age: 40 Year
  Sex: Female
  Weight: 126.98 kg

DRUGS (4)
  1. YASMIN [Suspect]
     Indication: POLYCYSTIC OVARIES
     Dosage: UNK
     Dates: start: 200203, end: 200209
  2. MULTIVITAMIN [Concomitant]
  3. CLARINEX [DESLORATADINE] [Concomitant]
  4. IRON SULFATE [Concomitant]

REACTIONS (7)
  - Deep vein thrombosis [None]
  - Deep vein thrombosis [None]
  - Off label use [None]
  - Injury [None]
  - Pain [None]
  - Emotional distress [None]
  - Anxiety [None]
